FAERS Safety Report 4385397-3 (Version None)
Quarter: 2004Q2

REPORT INFORMATION
  Report Type: 
  Country: None (occurrence: None)
  Receive Date: 20040622
  Receipt Date: 20040610
  Transmission Date: 20050107
  Serious: Yes (Hospitalization)
  Sender: FDA-Public Use
  Company Number: 04P-163-0263571-00

PATIENT
  Age: 68 Year
  Sex: Male

DRUGS (6)
  1. HYTRIN [Suspect]
     Dosage: 5MG, 1 IN 1 D, PER ORAL
     Route: 048
  2. LORAZEPAM [Concomitant]
  3. PROCHLORPERAZINE EDISYLATE [Concomitant]
  4. ATENOLOL [Concomitant]
  5. LISINOPRIL [Concomitant]
  6. HYDROCHLOROTHIAZIDE [Concomitant]

REACTIONS (6)
  - DEHYDRATION [None]
  - ELECTROCARDIOGRAM ABNORMAL [None]
  - MEDICATION ERROR [None]
  - OESOPHAGEAL CARCINOMA [None]
  - SYNCOPE [None]
  - WEIGHT DECREASED [None]
